FAERS Safety Report 22280301 (Version 1)
Quarter: 2023Q2

REPORT INFORMATION
  Report Type: Spontaneous
  Country: CN (occurrence: None)
  Receive Date: 20230503
  Receipt Date: 20230503
  Transmission Date: 20230721
  Serious: Yes (Hospitalization, Other)
  Sender: FDA-Public Use
  Company Number: 2023A097149

PATIENT
  Age: 77 Year
  Sex: Male
  Weight: 33 kg

DRUGS (13)
  1. PULMICORT TURBUHALER [Suspect]
     Active Substance: BUDESONIDE
     Indication: Analgesic intervention supportive therapy
     Route: 055
     Dates: start: 20230228, end: 20230308
  2. PULMICORT TURBUHALER [Suspect]
     Active Substance: BUDESONIDE
     Indication: Torticollis
     Route: 055
     Dates: start: 20230228, end: 20230308
  3. PULMICORT TURBUHALER [Suspect]
     Active Substance: BUDESONIDE
     Indication: Dyspnoea
     Route: 055
     Dates: start: 20230228, end: 20230308
  4. IPRATROPIUM BROMIDE [Suspect]
     Active Substance: IPRATROPIUM BROMIDE\IPRATROPIUM BROMIDE ANHYDROUS
     Indication: Analgesic intervention supportive therapy
     Dates: start: 20230228, end: 20230308
  5. IPRATROPIUM BROMIDE [Suspect]
     Active Substance: IPRATROPIUM BROMIDE\IPRATROPIUM BROMIDE ANHYDROUS
     Indication: Torticollis
     Dates: start: 20230228, end: 20230308
  6. IPRATROPIUM BROMIDE [Suspect]
     Active Substance: IPRATROPIUM BROMIDE\IPRATROPIUM BROMIDE ANHYDROUS
     Indication: Dyspnoea
     Dates: start: 20230228, end: 20230308
  7. BUPLEURUM [Concomitant]
     Indication: Rhinitis allergic
     Route: 030
  8. DEXTROSE\SODIUM CHLORIDE [Concomitant]
     Active Substance: DEXTROSE\SODIUM CHLORIDE
     Indication: Fluid replacement
  9. IMMUNE GLOBULIN NOS [Concomitant]
     Active Substance: IMMUNE GLOBULIN NOS
     Dosage: SUPPLEMENTATION IF NECESSARY
  10. BORIC ACID [Concomitant]
     Active Substance: BORIC ACID
     Dosage: 1ML FOR EXTERNAL USE
  11. BERBERINE OIL [Concomitant]
     Dosage: 1ML FOR EXTERNAL USE
  12. ETHACRIDINE LACTATE [Concomitant]
     Active Substance: ETHACRIDINE LACTATE
     Route: 048
  13. ETHACRIDINE LACTATE [Concomitant]
     Active Substance: ETHACRIDINE LACTATE
     Dosage: 1ML FOR EXTERNAL USE

REACTIONS (3)
  - Oral herpes [Recovered/Resolved]
  - Pneumonia [Recovered/Resolved]
  - Pemphigus [Recovered/Resolved]

NARRATIVE: CASE EVENT DATE: 20230308
